FAERS Safety Report 7611261-X (Version None)
Quarter: 2011Q3

REPORT INFORMATION
  Report Type: 
  Country: None (occurrence: None)
  Receive Date: 20110715
  Receipt Date: 20110705
  Transmission Date: 20111222
  Serious: Yes (Hospitalization)
  Sender: FDA-Public Use
  Company Number: US-PFIZER INC-2011151206

PATIENT
  Sex: Male

DRUGS (7)
  1. LEUCOVORIN CALCIUM [Suspect]
     Indication: COLORECTAL CANCER
     Dosage: 400 MG/M2, EVERY 14 DAYS
     Route: 042
     Dates: start: 20110330, end: 20110511
  2. ATIVAN [Concomitant]
     Dosage: UNK
     Dates: start: 20100908
  3. OXYCODONE [Concomitant]
     Dosage: UNK
     Dates: start: 20110413
  4. IRINOTECAN HCL [Suspect]
     Indication: COLORECTAL CANCER
     Dosage: 180 MG/M2, EVERY 14 DAYS
     Route: 042
     Dates: start: 20110330, end: 20110511
  5. FLUOROURACIL [Suspect]
     Dosage: 2400 MG/M2, D1-2, EVERY 14 DAYS
     Route: 041
     Dates: start: 20110330, end: 20110511
  6. FLUOROURACIL [Suspect]
     Indication: COLORECTAL CANCER
     Dosage: 400 MG/M2, EVERY 14 DAYS
     Route: 040
     Dates: start: 20110330, end: 20110511
  7. FLUCONAZOLE [Suspect]
     Indication: COLORECTAL CANCER
     Dosage: UNK
     Route: 042
     Dates: start: 20110330, end: 20110511

REACTIONS (1)
  - GASTRITIS [None]
